FAERS Safety Report 5061770-5 (Version None)
Quarter: 2006Q3

REPORT INFORMATION
  Report Type: 
  Country: None (occurrence: None)
  Receive Date: 20060726
  Receipt Date: 20060407
  Transmission Date: 20061208
  Serious: No
  Sender: FDA-Public Use
  Company Number: US-GLAXOSMITHKLINE-A0600944A

PATIENT
  Age: 77 Year
  Sex: Female

DRUGS (2)
  1. DYAZIDE [Suspect]
     Indication: HYPERTENSION
     Dosage: 37.5CAP PER DAY
     Route: 048
     Dates: start: 19860101
  2. MULTI-VITAMIN [Concomitant]

REACTIONS (10)
  - ASTHENIA [None]
  - DEPRESSED MOOD [None]
  - DIZZINESS [None]
  - FEELING ABNORMAL [None]
  - HYPOAESTHESIA [None]
  - HYPOAESTHESIA FACIAL [None]
  - PHARMACEUTICAL PRODUCT COMPLAINT [None]
  - PRURITUS [None]
  - SENSATION OF HEAVINESS [None]
  - SLUGGISHNESS [None]
